FAERS Safety Report 18112369 (Version 1)
Quarter: 2020Q3

REPORT INFORMATION
  Report Type: Spontaneous
  Country: US (occurrence: US)
  Receive Date: 20200805
  Receipt Date: 20200805
  Transmission Date: 20201103
  Serious: No
  Sender: FDA-Public Use
  Company Number: US-SA-2020SA199829

PATIENT

DRUGS (11)
  1. AMITRIPTYLIN [Concomitant]
     Active Substance: AMITRIPTYLINE
     Dosage: UNK
  2. PROAIR HFA [Concomitant]
     Active Substance: ALBUTEROL SULFATE
  3. AUBAGIO [Suspect]
     Active Substance: TERIFLUNOMIDE
     Indication: PRODUCT USED FOR UNKNOWN INDICATION
     Dosage: 14 MG, QD
     Route: 048
  4. DIAZEPAM. [Concomitant]
     Active Substance: DIAZEPAM
  5. GABAPENTIN. [Concomitant]
     Active Substance: GABAPENTIN
  6. TRIAMCINOLON [TRIAMCINOLONE] [Concomitant]
     Active Substance: TRIAMCINOLONE
  7. PRAZOSIN HCL [Concomitant]
     Active Substance: PRAZOSIN HYDROCHLORIDE
  8. VITAMINS NOS [Concomitant]
     Active Substance: VITAMINS
  9. HYDROCODONE BITARTRATE AND ACETAMINOPHEN [Concomitant]
     Active Substance: ACETAMINOPHEN\HYDROCODONE BITARTRATE
  10. TIZANIDINE. [Concomitant]
     Active Substance: TIZANIDINE
  11. ADVAIR HFA [Concomitant]
     Active Substance: FLUTICASONE PROPIONATE\SALMETEROL XINAFOATE

REACTIONS (1)
  - Headache [Not Recovered/Not Resolved]
